FAERS Safety Report 18496742 (Version 1)
Quarter: 2020Q4

REPORT INFORMATION
  Report Type: Spontaneous
  Country: US (occurrence: US)
  Receive Date: 20201112
  Receipt Date: 20201112
  Transmission Date: 20210114
  Serious: No
  Sender: FDA-Public Use
  Company Number: None

PATIENT
  Age: 33 Year
  Sex: Female
  Weight: 100.7 kg

DRUGS (1)
  1. OMNIPAQUE [Suspect]
     Active Substance: IOHEXOL
     Indication: PULMONARY EMBOLISM
     Dosage: ?          OTHER FREQUENCY:ONCE;?
     Route: 042
     Dates: start: 20201111, end: 20201111

REACTIONS (7)
  - Autoscopy [None]
  - Somnolence [None]
  - Feeling abnormal [None]
  - Hallucination, auditory [None]
  - Sneezing [None]
  - Pruritus [None]
  - Paranasal sinus discomfort [None]

NARRATIVE: CASE EVENT DATE: 20201111
